FAERS Safety Report 6042461-0 (Version None)
Quarter: 2009Q1

REPORT INFORMATION
  Report Type: 
  Country: None (occurrence: None)
  Receive Date: 20090116
  Receipt Date: 20090113
  Transmission Date: 20090719
  Serious: No
  Sender: FDA-Public Use
  Company Number: US-B.I. PHARMACEUTICALS,INC./RIDGEFIELD-2008-BP-19088BP

PATIENT
  Age: 61 Year
  Sex: Female

DRUGS (21)
  1. AGGRENOX [Suspect]
     Indication: CEREBROVASCULAR ACCIDENT PROPHYLAXIS
     Route: 048
     Dates: start: 20031201
  2. AGGRENOX [Suspect]
     Indication: CEREBROVASCULAR ACCIDENT
  3. AGGRENOX [Suspect]
     Indication: MUSCULAR WEAKNESS
  4. RECLAST [Concomitant]
     Indication: OSTEOPOROSIS
     Route: 042
  5. ASPIRIN [Concomitant]
     Indication: CEREBROVASCULAR ACCIDENT
  6. INSULIN [Concomitant]
     Indication: DIABETES MELLITUS
  7. SYNTHROID [Concomitant]
     Indication: THYROID DISORDER
  8. NOVOLOG [Concomitant]
     Route: 030
  9. LANTUS [Concomitant]
     Route: 030
  10. NASACORT [Concomitant]
  11. ASTELIN [Concomitant]
  12. ATROVENT SPRAY [Concomitant]
  13. FOLIC ACID [Concomitant]
  14. VITAMIN E [Concomitant]
  15. PRILOSEC [Concomitant]
  16. CARAFATE [Concomitant]
  17. MULTI-VITAMIN [Concomitant]
  18. CALCIUM AND VITAMIN D [Concomitant]
  19. ZINC [Concomitant]
  20. MAGNESIUM SULFATE [Concomitant]
  21. GLUCOSAMINE CHONDROITIN [Concomitant]

REACTIONS (3)
  - CONTUSION [None]
  - OEDEMA PERIPHERAL [None]
  - PAIN IN EXTREMITY [None]
